FAERS Safety Report 16325236 (Version 3)
Quarter: 2019Q2

REPORT INFORMATION
  Report Type: Spontaneous
  Country: US (occurrence: US)
  Receive Date: 20190517
  Receipt Date: 20190529
  Transmission Date: 20190711
  Serious: Yes (Other)
  Sender: FDA-Public Use
  Company Number: US-PFIZER INC-2019210243

PATIENT
  Age: 57 Year
  Sex: Female
  Weight: 100 kg

DRUGS (2)
  1. TOPAMAX [Suspect]
     Active Substance: TOPIRAMATE
     Indication: MIGRAINE
     Dosage: 100 MG, 1X/DAY(ONCE DAILY FOR 2 WEEKS)
     Route: 048
  2. LYRICA [Suspect]
     Active Substance: PREGABALIN
     Indication: FIBROMYALGIA
     Dosage: 225 MG, 2X/DAY
     Route: 048

REACTIONS (5)
  - Blood urine present [Recovered/Resolved]
  - Urinary tract infection [Recovered/Resolved]
  - Nephrolithiasis [Not Recovered/Not Resolved]
  - Escherichia urinary tract infection [Unknown]
  - Abdominal discomfort [Recovered/Resolved]

NARRATIVE: CASE EVENT DATE: 20190501
